FAERS Safety Report 14992745 (Version 1)
Quarter: 2018Q2

REPORT INFORMATION
  Report Type: Spontaneous
  Country: US (occurrence: US)
  Receive Date: 20180517
  Receipt Date: 20180517
  Transmission Date: 20180711
  Serious: Yes (Hospitalization)
  Sender: FDA-Public Use
  Company Number: None

PATIENT
  Age: 36 Year
  Sex: Female

DRUGS (14)
  1. TRIAMT/HCTZ [Concomitant]
     Active Substance: HYDROCHLOROTHIAZIDE\TRIAMTERENE
  2. FLUTICASONE. [Concomitant]
     Active Substance: FLUTICASONE
  3. AMITRIPTYLIN [Concomitant]
     Active Substance: AMITRIPTYLINE
  4. VALACYCLOVIR [Concomitant]
     Active Substance: VALACYCLOVIR HYDROCHLORIDE
  5. MECLIZINE [Concomitant]
     Active Substance: MECLIZINE HYDROCHLORIDE
  6. TRETINOIN 100 [Suspect]
     Active Substance: TRETINOIN
     Indication: DRUG THERAPY
     Route: 048
  7. ACETAZOLAMID [Concomitant]
     Active Substance: ACETAZOLAMIDE
  8. METHYLPRED [Concomitant]
     Active Substance: METHYLPREDNISOLONE
  9. XARELTO [Concomitant]
     Active Substance: RIVAROXABAN
  10. BUT/APAP/CAF [Concomitant]
  11. CLONAZEPAM. [Concomitant]
     Active Substance: CLONAZEPAM
  12. AMOX/K CLAV [Concomitant]
     Active Substance: AMOXICILLIN\CLAVULANATE POTASSIUM
  13. RIZATRIPTAN. [Concomitant]
     Active Substance: RIZATRIPTAN
  14. CEFDINIR. [Concomitant]
     Active Substance: CEFDINIR

REACTIONS (1)
  - Hospitalisation [None]

NARRATIVE: CASE EVENT DATE: 201804
